FAERS Safety Report 7975037-6 (Version None)
Quarter: 2011Q4

REPORT INFORMATION
  Report Type: 
  Country: None (occurrence: None)
  Receive Date: 20111213
  Receipt Date: 20111025
  Transmission Date: 20120403
  Serious: No
  Sender: FDA-Public Use
  Company Number: US-AMGEN-USASP2011055309

PATIENT
  Age: 57 Year
  Sex: Female

DRUGS (1)
  1. ENBREL [Suspect]
     Indication: RHEUMATOID ARTHRITIS
     Dosage: 50 MG, QWK
     Dates: start: 20040501

REACTIONS (8)
  - BENIGN BREAST NEOPLASM [None]
  - SKIN ULCER [None]
  - VULVOVAGINAL PRURITUS [None]
  - DYSURIA [None]
  - CYST [None]
  - MUSCLE SPASMS [None]
  - ACNE [None]
  - PRURITUS [None]
